FAERS Safety Report 10614077 (Version 2)
Quarter: 2016Q3

REPORT INFORMATION
  Report Type: Spontaneous
  Country: BR (occurrence: BR)
  Receive Date: 20141128
  Receipt Date: 20160805
  Transmission Date: 20161109
  Serious: Yes (Death, Hospitalization, Other)
  Sender: FDA-Public Use
  Company Number: BR-ASTRAZENECA-2014SE90734

PATIENT
  Age: 95 Year
  Sex: Male

DRUGS (6)
  1. TENORETIC [Suspect]
     Active Substance: ATENOLOL\CHLORTHALIDONE
     Indication: BLOOD PRESSURE INCREASED
     Route: 048
  2. SELOPRESS [Suspect]
     Active Substance: HYDROCHLOROTHIAZIDE\METOPROLOL TARTRATE
     Indication: VENTRICULAR ARRHYTHMIA
     Dosage: 200 MG
     Route: 048
  3. SELOPRESS [Suspect]
     Active Substance: HYDROCHLOROTHIAZIDE\METOPROLOL TARTRATE
     Indication: VENTRICULAR ARRHYTHMIA
     Dosage: 100/12.5MG
     Route: 048
  4. REDOXON [Concomitant]
     Active Substance: ASCORBIC ACID
     Route: 048
  5. TENORETIC [Suspect]
     Active Substance: ATENOLOL\CHLORTHALIDONE
     Indication: POLYURIA
     Route: 048
  6. ANCORON [Concomitant]
     Active Substance: AMIODARONE HYDROCHLORIDE
     Indication: VASCULAR COMPRESSION

REACTIONS (7)
  - Intestinal polyp [Unknown]
  - Nausea [Unknown]
  - Nosocomial infection [Fatal]
  - Blood pressure increased [Unknown]
  - Diarrhoea [Unknown]
  - Blood pressure systolic increased [Unknown]
  - Hot flush [Unknown]

NARRATIVE: CASE EVENT DATE: 2008
